FAERS Safety Report 5407192-6 (Version None)
Quarter: 2007Q3

REPORT INFORMATION
  Report Type: 
  Country: None (occurrence: None)
  Receive Date: 20070807
  Receipt Date: 20070730
  Transmission Date: 20080115
  Serious: Yes (Death, Hospitalization, Disabling)
  Sender: FDA-Public Use
  Company Number: A0239980A

PATIENT
  Age: 69 Year
  Sex: Female
  Weight: 47.62 kg

DRUGS (2)
  1. AUGMENTIN '125' [Suspect]
     Indication: PROPHYLAXIS
     Dosage: 375MG THREE TIMES PER DAY
     Route: 048
     Dates: start: 19950516, end: 19950101
  2. DILANTIN KAPSEAL [Concomitant]

REACTIONS (25)
  - ACTIVATED PARTIAL THROMBOPLASTIN TIME PROLONGED [None]
  - ARRHYTHMIA [None]
  - ASTHENIA [None]
  - BLOOD ALBUMIN DECREASED [None]
  - BLOOD CALCIUM DECREASED [None]
  - CLOSTRIDIAL INFECTION [None]
  - COAGULOPATHY [None]
  - DIARRHOEA [None]
  - DYSSTASIA [None]
  - EATING DISORDER [None]
  - FALL [None]
  - FEELING COLD [None]
  - HYPOTENSION [None]
  - LEUKOCYTOSIS [None]
  - MALAISE [None]
  - MEGACOLON [None]
  - METABOLIC ACIDOSIS [None]
  - PLATELET COUNT DECREASED [None]
  - PROTHROMBIN TIME PROLONGED [None]
  - PSEUDOMEMBRANOUS COLITIS [None]
  - PYREXIA [None]
  - SEPTIC SHOCK [None]
  - URINE OUTPUT DECREASED [None]
  - WEIGHT DECREASED [None]
  - WHITE BLOOD CELL COUNT INCREASED [None]
